FAERS Safety Report 9827316 (Version 1)
Quarter: 2013Q4

REPORT INFORMATION
  Report Type: Spontaneous
  Country: US (occurrence: None)
  Receive Date: 20131120
  Receipt Date: 20131120
  Transmission Date: 20140711
  Serious: Yes (Hospitalization, Other)
  Sender: FDA-Public Use
  Company Number: 1000048566

PATIENT
  Age: 3 Year
  Sex: Male

DRUGS (1)
  1. VIIBRYD (VILAZODONE HYDROCHLORIDE) [Suspect]
     Dosage: ONCE
     Dates: start: 20130318, end: 20130318

REACTIONS (1)
  - Accidental exposure to product [None]
